FAERS Safety Report 7988756-2 (Version None)
Quarter: 2011Q4

REPORT INFORMATION
  Report Type: 
  Country: None (occurrence: None)
  Receive Date: 20111219
  Receipt Date: 20111209
  Transmission Date: 20120403
  Serious: Yes (Hospitalization)
  Sender: FDA-Public Use
  Company Number: US-BIOGENIDEC-2011BI047016

PATIENT
  Age: 50 Year
  Sex: Female

DRUGS (2)
  1. TYSABRI [Suspect]
     Route: 042
     Dates: start: 20080520, end: 20090206
  2. TYSABRI [Suspect]
     Indication: MULTIPLE SCLEROSIS
     Route: 042
     Dates: start: 20100526

REACTIONS (6)
  - SEPSIS [None]
  - TOOTH DISORDER [None]
  - URINARY RETENTION [None]
  - UROSEPSIS [None]
  - INTESTINAL OBSTRUCTION [None]
  - DEHYDRATION [None]
